FAERS Safety Report 20986926 (Version 3)
Quarter: 2022Q3

REPORT INFORMATION
  Report Type: Spontaneous
  Country: CZ (occurrence: CZ)
  Receive Date: 20220621
  Receipt Date: 20220711
  Transmission Date: 20221027
  Serious: Yes (Death, Life-Threatening, Hospitalization, Disabling, Other)
  Sender: FDA-Public Use
  Company Number: None

PATIENT
  Age: 75 Year
  Sex: Female
  Weight: 66 kg

DRUGS (10)
  1. SUTENT [Suspect]
     Active Substance: SUNITINIB MALATE
     Indication: Renal cancer
     Dosage: 50 MG ONCE A DAY FOR 14 DAYS, THEN BREAK FOR 7 DAYS
     Route: 048
     Dates: start: 20220409, end: 20220422
  2. SUTENT [Suspect]
     Active Substance: SUNITINIB MALATE
     Dosage: 37,5 MG ONCE A DAY FOR 14 DAYS, THEN BREAK FOR 7 DAYS
     Route: 048
     Dates: start: 20220430, end: 20220513
  3. SUTENT [Suspect]
     Active Substance: SUNITINIB MALATE
     Dosage: 37.5 MG, DAILY
     Route: 048
     Dates: start: 20220521, end: 20220523
  4. ELIQUIS [Concomitant]
     Active Substance: APIXABAN
     Dosage: UNK, 2X/DAY(1-0-1)
  5. DEXAMETHASONE SODIUM PHOSPHATE [Concomitant]
     Active Substance: DEXAMETHASONE SODIUM PHOSPHATE
     Dosage: UNK
  6. OMEPRAZOLE [Concomitant]
     Active Substance: OMEPRAZOLE
     Dosage: UNK
  7. ISOLYTE [MAGNESIUM CHLORIDE HEXAHYDRATE;POTASSIUM CHLORIDE;SODIUM ACET [Concomitant]
     Dosage: UNK
  8. SORBIFER [ASCORBIC ACID;FERROUS SULFATE] [Concomitant]
     Dosage: UNK
  9. BISOPROLOL FUMARATE [Concomitant]
     Active Substance: BISOPROLOL FUMARATE
     Dosage: UNK
  10. LEVOTHYROXINE SODIUM [Concomitant]
     Active Substance: LEVOTHYROXINE SODIUM
     Dosage: UNK

REACTIONS (2)
  - Thrombocytopenia [Fatal]
  - Neoplasm progression [Fatal]

NARRATIVE: CASE EVENT DATE: 20220524
